FAERS Safety Report 9919480 (Version 2)
Quarter: 2014Q2

REPORT INFORMATION
  Report Type: Spontaneous
  Country: JP (occurrence: JP)
  Receive Date: 20140224
  Receipt Date: 20140416
  Transmission Date: 20141212
  Serious: Yes (Life-Threatening)
  Sender: FDA-Public Use
  Company Number: JP-TAKEDA-2014TEU001514

PATIENT
  Age: 67 Year
  Sex: Female

DRUGS (7)
  1. TACHOSIL [Suspect]
     Indication: HAEMORRHAGE PROPHYLAXIS
     Dosage: 1SHEET /1DAY
     Dates: start: 20130312, end: 20130312
  2. BERIPLAST P COMBI SET [Concomitant]
     Indication: HAEMOSTASIS
     Dosage: 5 ML, QD
     Dates: start: 20130312, end: 20130312
  3. ARTIST [Concomitant]
     Indication: CARDIAC FAILURE CONGESTIVE
     Dosage: 1.25 MG, QD
  4. WARFARIN [Concomitant]
     Indication: MITRAL VALVE INCOMPETENCE
     Dosage: 1.5 MG, QD
     Dates: end: 201306
  5. WARFARIN [Concomitant]
     Indication: ATRIAL FIBRILLATION
  6. RED CELL CONCENTRATED [Concomitant]
  7. FRESH FROZEN PLASMA [Concomitant]

REACTIONS (1)
  - Post procedural haemorrhage [Recovered/Resolved]
